FAERS Safety Report 20377989 (Version 1)
Quarter: 2022Q1

REPORT INFORMATION
  Report Type: Spontaneous
  Country: US (occurrence: US)
  Receive Date: 20220126
  Receipt Date: 20220126
  Transmission Date: 20220423
  Serious: Yes (Other)
  Sender: FDA-Public Use
  Company Number: US-ROCHE-2847509

PATIENT
  Sex: Female
  Weight: 83.989 kg

DRUGS (10)
  1. CLONAZEPAM [Suspect]
     Active Substance: CLONAZEPAM
     Indication: Essential tremor
     Dosage: YES
     Route: 048
  2. CLONAZEPAM [Suspect]
     Active Substance: CLONAZEPAM
     Indication: Anxiety
     Dosage: YES
     Route: 048
  3. OCREVUS [Suspect]
     Active Substance: OCRELIZUMAB
     Indication: Relapsing-remitting multiple sclerosis
     Dosage: ONGOING: YES? DATE OF TREATMENT: 19/NOV/2019, 03/DEC/2019, 05/MAY/2020, 02/MAR/2021, 03/AUG/2021
     Route: 042
     Dates: start: 201810
  4. TRAMADOL [Suspect]
     Active Substance: TRAMADOL
     Indication: Pain
     Route: 048
  5. COLCHICINE [Concomitant]
     Active Substance: COLCHICINE
     Indication: Behcet^s syndrome
     Route: 048
     Dates: start: 2008
  6. PREDNISONE [Concomitant]
     Active Substance: PREDNISONE
     Indication: Rheumatoid arthritis
     Route: 048
     Dates: start: 2001
  7. PREDNISONE [Concomitant]
     Active Substance: PREDNISONE
     Indication: Behcet^s syndrome
     Route: 048
     Dates: start: 2001
  8. MELATONIN [Concomitant]
     Active Substance: MELATONIN
     Indication: Sleep disorder
     Route: 048
     Dates: start: 2021
  9. PROPRANOLOL [Concomitant]
     Active Substance: PROPRANOLOL HYDROCHLORIDE
     Indication: Cluster headache
     Route: 048
     Dates: start: 201806
  10. PRILOSEC [Concomitant]
     Active Substance: OMEPRAZOLE MAGNESIUM
     Indication: Gastrooesophageal reflux disease
     Route: 048
     Dates: start: 1995

REACTIONS (14)
  - COVID-19 [Recovered/Resolved]
  - Cognitive disorder [Not Recovered/Not Resolved]
  - Gait disturbance [Not Recovered/Not Resolved]
  - Alopecia [Recovered/Resolved]
  - Oedema peripheral [Not Recovered/Not Resolved]
  - Anaemia [Not Recovered/Not Resolved]
  - Mobility decreased [Unknown]
  - Multiple sclerosis relapse [Unknown]
  - Fall [Unknown]
  - Disturbance in attention [Unknown]
  - Amnesia [Unknown]
  - Oropharyngeal pain [Not Recovered/Not Resolved]
  - Restless legs syndrome [Not Recovered/Not Resolved]
  - Anxiety [Not Recovered/Not Resolved]

NARRATIVE: CASE EVENT DATE: 20200101
